FAERS Safety Report 9994872 (Version 1)
Quarter: 2014Q1

REPORT INFORMATION
  Report Type: Spontaneous
  Country: GB (occurrence: None)
  Receive Date: 20140218
  Receipt Date: 20140218
  Transmission Date: 20141002
  Serious: Yes (Other)
  Sender: FDA-Public Use
  Company Number: E2B_00001534

PATIENT
  Sex: Male

DRUGS (3)
  1. METFORMIN [Suspect]
     Indication: DIABETES MELLITUS
     Route: 048
  2. GLICLAZIDE [Suspect]
     Indication: PRODUCT USED FOR UNKNOWN INDICATION
  3. IRBESARTAN [Suspect]
     Indication: HYPERTENSION
     Route: 048

REACTIONS (4)
  - Halo vision [None]
  - Photopsia [None]
  - Diabetes mellitus inadequate control [None]
  - Visual impairment [None]
